FAERS Safety Report 8520924 (Version 5)
Quarter: 2013Q2

REPORT INFORMATION
  Report Type: Spontaneous
  Country: US (occurrence: US)
  Receive Date: 20120419
  Receipt Date: 20130415
  Transmission Date: 20140414
  Serious: Yes (Hospitalization)
  Sender: FDA-Public Use
  Company Number: US-BIOGENIDEC-2012BI012844

PATIENT
  Age: 57 Year
  Sex: Female

DRUGS (9)
  1. TYSABRI [Suspect]
     Indication: MULTIPLE SCLEROSIS
     Route: 042
     Dates: start: 20071030
  2. WELLBUTRIN [Concomitant]
     Indication: DEPRESSION
  3. CELEXA [Concomitant]
     Indication: DEPRESSION
  4. MOTRIN [Concomitant]
     Indication: ARTHRALGIA
  5. STEROID (NOS) INJECTIONS [Concomitant]
     Indication: ARTHRALGIA
  6. VICODIN [Concomitant]
     Indication: HEADACHE
  7. DARVOCET [Concomitant]
     Indication: PAIN
  8. COZAAR [Concomitant]
     Indication: HYPERTENSION
  9. ULTRAM [Concomitant]
     Indication: ARTHRALGIA

REACTIONS (1)
  - Arthralgia [Recovered/Resolved]
